FAERS Safety Report 8605775-3 (Version None)
Quarter: 2012Q3

REPORT INFORMATION
  Report Type: 
  Country: None (occurrence: None)
  Receive Date: 20120820
  Receipt Date: 20120813
  Transmission Date: 20120928
  Serious: No
  Sender: FDA-Public Use
  Company Number: US-PFIZER INC-2012197179

PATIENT
  Age: 71 Year
  Sex: Male

DRUGS (2)
  1. SUTENT [Suspect]
     Indication: BONE NEOPLASM MALIGNANT
  2. SUTENT [Suspect]
     Indication: RENAL CANCER
     Dosage: 50 MG, 1X/DAY
     Dates: start: 20120731

REACTIONS (3)
  - ASTHENIA [None]
  - OEDEMA PERIPHERAL [None]
  - DYSPNOEA [None]
